FAERS Safety Report 23835207 (Version 1)
Quarter: 2024Q2

REPORT INFORMATION
  Report Type: Spontaneous
  Country: US (occurrence: US)
  Receive Date: 20240509
  Receipt Date: 20240509
  Transmission Date: 20240716
  Serious: No
  Sender: FDA-Public Use
  Company Number: US-GLENMARK PHARMACEUTICALS-2023GMK086832

PATIENT

DRUGS (2)
  1. HEATHER [Suspect]
     Active Substance: NORETHINDRONE
     Indication: Heavy menstrual bleeding
     Dosage: 0.35 MILLIGRAM, OD
     Route: 065
     Dates: start: 20231025
  2. HEATHER [Suspect]
     Active Substance: NORETHINDRONE
     Indication: Endometriosis

REACTIONS (4)
  - Panic attack [Unknown]
  - Product use in unapproved indication [Unknown]
  - Menstruation irregular [Unknown]
  - Product substitution issue [Unknown]
